FAERS Safety Report 21425955 (Version 4)
Quarter: 2023Q1

REPORT INFORMATION
  Report Type: Spontaneous
  Country: SA (occurrence: SA)
  Receive Date: 20221008
  Receipt Date: 20230201
  Transmission Date: 20230417
  Serious: Yes (Hospitalization, Other)
  Sender: FDA-Public Use
  Company Number: SA-NOVARTISPH-NVSC2022SA224321

PATIENT
  Age: 48 Year
  Sex: Female

DRUGS (5)
  1. ADAKVEO [Suspect]
     Active Substance: CRIZANLIZUMAB-TMCA
     Indication: Sickle cell anaemia with crisis
     Dosage: 300 MG
     Route: 042
  2. ADAKVEO [Suspect]
     Active Substance: CRIZANLIZUMAB-TMCA
     Dosage: 300 MG (SECOND DOSE)
     Route: 042
  3. ADAKVEO [Suspect]
     Active Substance: CRIZANLIZUMAB-TMCA
     Dosage: 300 MG
     Route: 042
  4. ADAKVEO [Suspect]
     Active Substance: CRIZANLIZUMAB-TMCA
     Dosage: 300 MG (4TH DOSE) SOLUTION TO BE DILUTED FOR IV INFUSION
     Route: 042
  5. ADAKVEO [Suspect]
     Active Substance: CRIZANLIZUMAB-TMCA
     Dosage: 300 MG (5TH DOSE) SOLUTION TO BE DILUTED FOR IV INFUSION
     Route: 042

REACTIONS (4)
  - Fat embolism [Recovered/Resolved]
  - Hepatic enzyme increased [Recovered/Resolved]
  - Bone pain [Recovered/Resolved]
  - Dyspnoea [Recovered/Resolved]
